FAERS Safety Report 10644476 (Version 5)
Quarter: 2015Q3

REPORT INFORMATION
  Report Type: Report from Study
  Country: KR (occurrence: KR)
  Receive Date: 20141210
  Receipt Date: 20150710
  Transmission Date: 20151125
  Serious: Yes (Hospitalization, Other)
  Sender: FDA-Public Use
  Company Number: KR-GLAXOSMITHKLINE-KP2014GSK033975

PATIENT
  Age: 43 Year
  Sex: Female
  Weight: 67.6 kg

DRUGS (17)
  1. AZAPRINE [Concomitant]
  2. PERDIPIN LA [Concomitant]
  3. APROVEL [Concomitant]
     Active Substance: IRBESARTAN
  4. CEFTRIAXONE. [Concomitant]
     Active Substance: CEFTRIAXONE
  5. CLARI [Concomitant]
  6. SUPRAX [Concomitant]
     Active Substance: CEFIXIME
  7. BELIMUMAB [Suspect]
     Active Substance: BELIMUMAB
     Indication: SYSTEMIC LUPUS ERYTHEMATOSUS
     Dosage: UNK, CYC
     Route: 042
     Dates: start: 20120718
  8. SOLONDO [Concomitant]
     Active Substance: PREDNISOLONE
  9. PREDNISOLONE. [Concomitant]
     Active Substance: PREDNISOLONE
     Indication: IMMUNOSUPPRESSION
     Dosage: 10 MG, QD
  10. BUSCOPAN [Concomitant]
     Active Substance: BUTYLSCOPOLAMINE BROMIDE
  11. MUTERAN [Concomitant]
  12. METHOTREXATE [Concomitant]
     Active Substance: METHOTREXATE
     Indication: IMMUNOSUPPRESSION
     Dosage: 10 MG, WE
  13. COFREL [Concomitant]
  14. VAXAR (NOS) [Concomitant]
  15. HYDROXYCHLOROQUINE [Concomitant]
     Active Substance: HYDROXYCHLOROQUINE
     Dosage: 300 MG, QD
  16. ALMAGEL SUSPENSION [Concomitant]
  17. AROBEST [Concomitant]

REACTIONS (1)
  - Tuberculous pleurisy [Recovering/Resolving]

NARRATIVE: CASE EVENT DATE: 20141127
